FAERS Safety Report 11515140 (Version 2)
Quarter: 2015Q4

REPORT INFORMATION
  Report Type: Report from Study
  Country: AR (occurrence: AR)
  Receive Date: 20150916
  Receipt Date: 20151021
  Transmission Date: 20160304
  Serious: Yes (Other)
  Sender: FDA-Public Use
  Company Number: PHHY2015AR103070

PATIENT
  Age: 15 Year
  Sex: Male

DRUGS (2)
  1. LEVOTHYROXINE. [Concomitant]
     Active Substance: LEVOTHYROXINE
     Indication: RADIATION INJURY
     Dosage: UNK
     Route: 065
  2. EXJADE [Suspect]
     Active Substance: DEFERASIROX
     Indication: IRON OVERLOAD
     Dosage: UNK
     Route: 065
     Dates: start: 2012, end: 201408

REACTIONS (4)
  - Cerebral haemorrhage [Recovered/Resolved]
  - Cerebral haemangioma [Recovered/Resolved]
  - Fat tissue increased [Unknown]
  - Seizure [Unknown]

NARRATIVE: CASE EVENT DATE: 201408
